FAERS Safety Report 9841657 (Version 1)
Quarter: 2013Q4

REPORT INFORMATION
  Report Type: Spontaneous
  Country: US (occurrence: None)
  Receive Date: 20131219
  Receipt Date: 20131219
  Transmission Date: 20140711
  Serious: Yes (Hospitalization, Other)
  Sender: FDA-Public Use
  Company Number: 163-20785-13062173

PATIENT
  Age: 67 Year
  Sex: Male
  Weight: 101.2 kg

DRUGS (4)
  1. THALOMID (THALIDOMIDE) (50 MILLIGRAM, CAPSULES) [Suspect]
     Indication: PLASMA CELL MYELOMA
     Dosage: 1 IN 1 D
     Route: 048
     Dates: start: 201102
  2. VELCADE [Concomitant]
  3. DEXAMETHASONE [Concomitant]
  4. LEVAQUIN [Concomitant]

REACTIONS (3)
  - Pancytopenia [None]
  - Pneumonia [None]
  - Neuropathy peripheral [None]
